FAERS Safety Report 10014278 (Version 1)
Quarter: 2014Q1

REPORT INFORMATION
  Report Type: Spontaneous
  Country: US (occurrence: US)
  Receive Date: 20140317
  Receipt Date: 20140317
  Transmission Date: 20141002
  Serious: No
  Sender: FDA-Public Use
  Company Number: US-BIOGENIDEC-2014BI020825

PATIENT
  Age: 47 Year
  Sex: Female

DRUGS (3)
  1. TECFIDERA [Suspect]
     Indication: MULTIPLE SCLEROSIS
     Route: 048
     Dates: start: 20131110, end: 20140204
  2. AVONEX [Concomitant]
     Indication: MULTIPLE SCLEROSIS
     Route: 030
  3. AVONEX [Concomitant]
     Indication: MULTIPLE SCLEROSIS
     Route: 030
     Dates: start: 20081227, end: 20131101

REACTIONS (14)
  - Cognitive disorder [Unknown]
  - Fatigue [Unknown]
  - Central nervous system lesion [Unknown]
  - Tinnitus [Recovered/Resolved]
  - Confusional state [Recovered/Resolved]
  - Drug intolerance [Unknown]
  - Pain in extremity [Recovered/Resolved]
  - Gait disturbance [Recovered/Resolved]
  - Muscular weakness [Unknown]
  - Optic neuritis [Unknown]
  - General physical health deterioration [Unknown]
  - Malaise [Unknown]
  - Hot flush [Recovered/Resolved]
  - Flushing [Unknown]
